FAERS Safety Report 9479231 (Version 2)
Quarter: 2013Q3

REPORT INFORMATION
  Report Type: Spontaneous
  Country: US (occurrence: US)
  Receive Date: 20130827
  Receipt Date: 20130913
  Transmission Date: 20140515
  Serious: Yes (Other)
  Sender: FDA-Public Use
  Company Number: US-TEVA-427724USA

PATIENT
  Age: 25 Year
  Sex: Female
  Weight: 57.66 kg

DRUGS (3)
  1. PARAGARD 380A [Suspect]
     Indication: CONTRACEPTION
     Route: 015
     Dates: start: 20130524
  2. SYNTHROID [Concomitant]
     Indication: HYPOTHYROIDISM
     Route: 048
  3. VITAMIN D3 [Concomitant]

REACTIONS (2)
  - Device dislocation [Not Recovered/Not Resolved]
  - Vaginal infection [Unknown]
